FAERS Safety Report 5420639-4 (Version None)
Quarter: 2007Q3

REPORT INFORMATION
  Report Type: 
  Country: None (occurrence: None)
  Receive Date: 20070818
  Receipt Date: 20070801
  Transmission Date: 20080115
  Serious: Yes (Other)
  Sender: FDA-Public Use
  Company Number: 2007S1007176

PATIENT
  Age: 77 Year
  Sex: Female

DRUGS (7)
  1. NITROFURANTOIN [Suspect]
     Indication: CYSTITIS
     Dosage: 50 MG; DAILY; ORAL
     Route: 048
     Dates: start: 20050101, end: 20070709
  2. NITROFURANTOIN [Suspect]
     Indication: CYSTITIS
     Dosage: 50 MG; DAILY; ORAL
     Route: 048
  3. LIPITOR [Concomitant]
  4. ASPIRIN [Concomitant]
  5. PAROXETIN [Concomitant]
  6. METOPROLOL TARTRATE [Concomitant]
  7. CALCIUM [Concomitant]

REACTIONS (2)
  - PNEUMONIA [None]
  - PULMONARY FIBROSIS [None]
